FAERS Safety Report 12717613 (Version 1)
Quarter: 2016Q3

REPORT INFORMATION
  Report Type: Report from Study
  Country: US (occurrence: US)
  Receive Date: 20160906
  Receipt Date: 20160906
  Transmission Date: 20161109
  Serious: Yes (Other)
  Sender: FDA-Public Use
  Company Number: US-JNJFOC-20160900997

PATIENT
  Sex: Male

DRUGS (2)
  1. CALCITRIOL. [Suspect]
     Active Substance: CALCITRIOL
     Indication: HORMONE-REFRACTORY PROSTATE CANCER
     Dosage: FOR 3 CONSECUTIVE DAYS
     Route: 048
  2. KETOCONAZOLE. [Suspect]
     Active Substance: KETOCONAZOLE
     Indication: HORMONE-REFRACTORY PROSTATE CANCER
     Route: 048

REACTIONS (5)
  - Hypercalcaemia [Unknown]
  - Blood calcium increased [Unknown]
  - Toxicity to various agents [Unknown]
  - Hyperkalaemia [Unknown]
  - Dysphagia [Unknown]
